FAERS Safety Report 22320932 (Version 1)
Quarter: 2023Q2

REPORT INFORMATION
  Report Type: Spontaneous
  Country: CH (occurrence: CH)
  Receive Date: 20230515
  Receipt Date: 20230515
  Transmission Date: 20230722
  Serious: Yes (Life-Threatening, Hospitalization, Other)
  Sender: FDA-Public Use
  Company Number: None

PATIENT
  Age: 68 Year
  Sex: Male

DRUGS (1)
  1. ALDACTONE [Suspect]
     Active Substance: SPIRONOLACTONE
     Indication: Hypertensive heart disease
     Dosage: 25 MG, 1X/DAY
     Route: 048

REACTIONS (12)
  - Hyponatraemia [Recovering/Resolving]
  - Fall [Unknown]
  - Confusional state [Unknown]
  - Face injury [Unknown]
  - Seizure [Unknown]
  - Altered state of consciousness [Unknown]
  - Hypovolaemia [Unknown]
  - Polydipsia [Unknown]
  - Inappropriate antidiuretic hormone secretion [Unknown]
  - Cardiac failure [Unknown]
  - Ejection fraction decreased [Unknown]
  - Somnolence [Unknown]

NARRATIVE: CASE EVENT DATE: 20230406
